FAERS Safety Report 9825252 (Version 1)
Quarter: 2014Q1

REPORT INFORMATION
  Report Type: Spontaneous
  Country: US (occurrence: US)
  Receive Date: 20140117
  Receipt Date: 20140117
  Transmission Date: 20141002
  Serious: Yes (Hospitalization)
  Sender: FDA-Public Use
  Company Number: US-BEH-2014040051

PATIENT
  Sex: Female

DRUGS (1)
  1. BERINERT [Suspect]
     Indication: HEREDITARY ANGIOEDEMA

REACTIONS (2)
  - Cerebrovascular accident [Not Recovered/Not Resolved]
  - Coronary artery bypass [Unknown]
